FAERS Safety Report 7422792-X (Version None)
Quarter: 2011Q2

REPORT INFORMATION
  Report Type: 
  Country: None (occurrence: None)
  Receive Date: 20110419
  Receipt Date: 20110411
  Transmission Date: 20111010
  Serious: Yes (Hospitalization)
  Sender: FDA-Public Use
  Company Number: FR-NOVOPROD-326723

PATIENT
  Age: 47 Year
  Sex: Male

DRUGS (6)
  1. ASPEGIC 1000 [Concomitant]
     Indication: PROPHYLAXIS
     Dosage: 100 MG, UNK
  2. MOPRAL                             /00661201/ [Concomitant]
     Indication: HYPERTENSION
  3. AMARYL [Concomitant]
     Indication: TYPE 2 DIABETES MELLITUS
  4. GLUCOPHAGE [Concomitant]
     Indication: TYPE 2 DIABETES MELLITUS
  5. TRIATEC                            /00885601/ [Suspect]
     Indication: HYPERTRIGLYCERIDAEMIA
     Dates: end: 20110220
  6. VICTOZA [Suspect]
     Indication: TYPE 2 DIABETES MELLITUS
     Dosage: UNK
     Route: 065
     Dates: start: 20110117, end: 20110220

REACTIONS (1)
  - PANCREATITIS ACUTE [None]
